FAERS Safety Report 17942308 (Version 1)
Quarter: 2020Q2

REPORT INFORMATION
  Report Type: Spontaneous
  Country: US (occurrence: US)
  Receive Date: 20200625
  Receipt Date: 20200625
  Transmission Date: 20200714
  Serious: No
  Sender: FDA-Public Use
  Company Number: None

PATIENT
  Sex: Female

DRUGS (1)
  1. RHOGAM ULTRA-FILTERED PLUS [Suspect]
     Active Substance: HUMAN RHO(D) IMMUNE GLOBULIN
     Indication: PRENATAL CARE
     Route: 030

REACTIONS (2)
  - Abortion spontaneous [None]
  - Exposure during pregnancy [None]
